FAERS Safety Report 15115210 (Version 1)
Quarter: 2018Q3

REPORT INFORMATION
  Report Type: Spontaneous
  Country: ES (occurrence: ES)
  Receive Date: 20180706
  Receipt Date: 20180706
  Transmission Date: 20181010
  Serious: Yes (Hospitalization, Other)
  Sender: FDA-Public Use
  Company Number: ES-AUROBINDO-AUR-APL-2017-08558

PATIENT
  Age: 50 Year
  Sex: Female

DRUGS (2)
  1. AMOXICILLIN+CLAVULANIC ACID [Suspect]
     Active Substance: AMOXICILLIN\CLAVULANIC ACID
     Indication: ACUTE SINUSITIS
     Dosage: UNK
     Route: 065
     Dates: start: 200506
  2. IBUPROFEN. [Suspect]
     Active Substance: IBUPROFEN
     Indication: ACUTE SINUSITIS
     Dosage: UNK
     Route: 065
     Dates: start: 200506

REACTIONS (7)
  - Hypotension [Unknown]
  - Feeling abnormal [Unknown]
  - Palpitations [Unknown]
  - Kounis syndrome [Unknown]
  - Dyspnoea [Unknown]
  - Chest discomfort [Unknown]
  - Hyperhidrosis [Unknown]

NARRATIVE: CASE EVENT DATE: 200506
